FAERS Safety Report 6914563-5 (Version None)
Quarter: 2010Q3

REPORT INFORMATION
  Report Type: 
  Country: None (occurrence: None)
  Receive Date: 20100809
  Receipt Date: 20100726
  Transmission Date: 20110219
  Serious: Yes (Hospitalization)
  Sender: FDA-Public Use
  Company Number: DE-JNJFOC-20100606965

PATIENT
  Age: 95 Year
  Sex: Female

DRUGS (15)
  1. TRAMAL [Suspect]
     Indication: PRODUCT USED FOR UNKNOWN INDICATION
     Dosage: 3 DF/DAY
     Route: 048
  2. TRAMAL LONG 100 [Suspect]
     Indication: PRODUCT USED FOR UNKNOWN INDICATION
     Dosage: 2/DAY
     Route: 048
  3. OMEPRAZOLE [Concomitant]
     Route: 065
  4. NULYTELY [Concomitant]
     Route: 065
  5. HEPARIN SODIUM [Concomitant]
     Route: 065
  6. FURORESE [Concomitant]
     Route: 065
  7. ASPIRIN [Concomitant]
  8. NOVALGIN [Concomitant]
     Route: 065
  9. NOVALGIN [Concomitant]
     Route: 065
  10. CHLORALDURAT [Concomitant]
     Route: 065
  11. ZOLPIDEM TARTRATE [Concomitant]
  12. ATROVENT [Concomitant]
     Route: 055
  13. ALBUTEROL [Concomitant]
     Route: 055
  14. INDOMED [Concomitant]
     Route: 065
  15. ACIMETHIN [Concomitant]
     Route: 065

REACTIONS (2)
  - FAECALOMA [None]
  - SUBILEUS [None]
